FAERS Safety Report 6704985-X (Version None)
Quarter: 2010Q2

REPORT INFORMATION
  Report Type: 
  Country: None (occurrence: None)
  Receive Date: 20100430
  Receipt Date: 20100423
  Transmission Date: 20101027
  Serious: Yes (Life-Threatening)
  Sender: FDA-Public Use
  Company Number: A0854809A

PATIENT
  Age: 67 Year
  Sex: Female
  Weight: 73.6 kg

DRUGS (17)
  1. COREG CR [Suspect]
     Indication: DRUG USE FOR UNKNOWN INDICATION
     Route: 048
     Dates: start: 20100405, end: 20100412
  2. ZYLOPRIM [Concomitant]
     Dosage: 300MG IN THE MORNING
     Route: 048
  3. SOMOPHYLLIN [Concomitant]
     Dosage: 200MG TWICE PER DAY
     Route: 048
  4. ASPIRIN [Concomitant]
     Dosage: 162MG IN THE MORNING
     Route: 048
  5. PULMICORT [Concomitant]
     Dosage: 2PUFF TWICE PER DAY
     Route: 055
  6. BUMEX [Concomitant]
     Dosage: .5MG PER DAY
     Route: 048
  7. CENTRUM SILVER [Concomitant]
     Route: 048
  8. PLAVIX [Concomitant]
     Dosage: 75MG PER DAY
     Route: 048
  9. COMBIVENT [Concomitant]
     Route: 055
  10. CARDIZEM LA [Concomitant]
     Dosage: 180MG PER DAY
     Route: 048
  11. VYTORIN [Concomitant]
     Dosage: 1TAB AT NIGHT
     Route: 048
  12. NITROSTAT [Concomitant]
     Dosage: .4MG AS REQUIRED
     Route: 060
  13. OSCAL [Concomitant]
     Route: 048
  14. DELTASONE [Concomitant]
     Dosage: 5MG ALTERNATE DAYS
     Route: 048
  15. TAGAMET [Concomitant]
     Dosage: 800MG PER DAY
     Route: 048
  16. VITAMIN E [Concomitant]
  17. INTAL [Concomitant]
     Route: 055

REACTIONS (2)
  - ADVERSE EVENT [None]
  - ASTHMA [None]
